FAERS Safety Report 6129986-4 (Version None)
Quarter: 2009Q1

REPORT INFORMATION
  Report Type: 
  Country: None (occurrence: None)
  Receive Date: 20090323
  Receipt Date: 20090323
  Transmission Date: 20090719
  Serious: Yes (Other)
  Sender: FDA-Public Use
  Company Number: None

PATIENT
  Age: 7 Year
  Sex: Female
  Weight: 23.1334 kg

DRUGS (2)
  1. TAMIFLU [Suspect]
     Indication: INFLUENZA
     Dosage: 45 MG BID PO
     Route: 048
     Dates: start: 20090318, end: 20090321
  2. TAMIFLU [Suspect]
     Indication: SMEAR SITE UNSPECIFIED ABNORMAL
     Dosage: 45 MG BID PO
     Route: 048
     Dates: start: 20090318, end: 20090321

REACTIONS (2)
  - NAUSEA [None]
  - VOMITING [None]
